FAERS Safety Report 9738494 (Version 1)
Quarter: 2013Q4

REPORT INFORMATION
  Report Type: Spontaneous
  Country: CA (occurrence: CA)
  Receive Date: 20131208
  Receipt Date: 20131208
  Transmission Date: 20140711
  Serious: Yes (Other)
  Sender: FDA-Public Use
  Company Number: CA-AMGEN-CANSP2013085465

PATIENT
  Age: 74 Year
  Sex: Female

DRUGS (10)
  1. ENBREL [Suspect]
     Indication: RHEUMATOID ARTHRITIS
     Dosage: 50 MG, UNK
     Route: 065
     Dates: start: 20130326
  2. ACTONEL [Concomitant]
     Dosage: 35 MG, QWK
     Route: 065
  3. PLAQUENIL                          /00072602/ [Concomitant]
     Dosage: 200 MG, QD
     Route: 065
  4. PREDNISONE [Concomitant]
     Dosage: 5 MG, BID
     Route: 065
  5. ELAVIL                             /00002202/ [Concomitant]
     Dosage: 10 MG, 1 TO 2 TABLETS AT BEDTIME
     Route: 065
  6. CALCIUM [Concomitant]
     Dosage: UNK
  7. VITAMIN D                          /00107901/ [Concomitant]
     Dosage: 400 IU, UNK
  8. FOLIC ACID [Concomitant]
     Dosage: UNK
     Route: 065
  9. VITAMIN C                          /00008001/ [Concomitant]
     Dosage: UNK
     Route: 065
  10. VITAMIN E                          /00110501/ [Concomitant]
     Dosage: UNK
     Route: 065

REACTIONS (1)
  - Hip fracture [Recovered/Resolved]
